FAERS Safety Report 8058072-1 (Version None)
Quarter: 2012Q1

REPORT INFORMATION
  Report Type: 
  Country: None (occurrence: None)
  Receive Date: 20120118
  Receipt Date: 20120118
  Transmission Date: 20120608
  Serious: Yes (Other)
  Sender: FDA-Public Use
  Company Number: None

PATIENT
  Sex: Male
  Weight: 85.2 kg

DRUGS (3)
  1. RITUXIMAB 375 MG/M2 GENENTECH CORPORATION [Suspect]
     Indication: LYMPHOMA
     Dosage: WEEKLY X 4 WEEKS IV
     Route: 042
     Dates: start: 20101220, end: 20110111
  2. LENALIDOMIDE [Suspect]
     Indication: LYMPHOMA
     Dosage: 5 MG DAILY PO
     Route: 048
     Dates: start: 20090717, end: 20120109
  3. SEE ATTACHED [Concomitant]

REACTIONS (4)
  - NEOPLASM MALIGNANT [None]
  - LEUKAEMIA [None]
  - PULMONARY EMBOLISM [None]
  - LYMPHOMA [None]
